FAERS Safety Report 8277201-8 (Version None)
Quarter: 2012Q2

REPORT INFORMATION
  Report Type: 
  Country: None (occurrence: None)
  Receive Date: 20120412
  Receipt Date: 20120405
  Transmission Date: 20120825
  Serious: Yes (Hospitalization)
  Sender: FDA-Public Use
  Company Number: US-GLAXOSMITHKLINE-A0794430A

PATIENT
  Age: 60 Year
  Sex: Male

DRUGS (5)
  1. INSULIN [Concomitant]
  2. GLUCOPHAGE [Concomitant]
  3. AMITRIPTYLINE HYDROCHLORIDE [Concomitant]
  4. AVANDIA [Suspect]
     Indication: DIABETES MELLITUS
     Dosage: 4MG TWICE PER DAY
     Route: 048
     Dates: start: 20030101, end: 20060101
  5. ATENOLOL [Concomitant]

REACTIONS (5)
  - ISCHAEMIC CARDIOMYOPATHY [None]
  - INSOMNIA [None]
  - CORONARY ARTERY DISEASE [None]
  - CARDIAC FAILURE CONGESTIVE [None]
  - PERSONALITY CHANGE [None]
